FAERS Safety Report 10028888 (Version 1)
Quarter: 2014Q1

REPORT INFORMATION
  Report Type: Spontaneous
  Country: JP (occurrence: JP)
  Receive Date: 20140321
  Receipt Date: 20140321
  Transmission Date: 20141002
  Serious: Yes (Hospitalization)
  Sender: FDA-Public Use
  Company Number: JP-JNJFOC-20140309704

PATIENT
  Sex: Female

DRUGS (2)
  1. REMINYL [Suspect]
     Indication: DEMENTIA ALZHEIMER^S TYPE
     Route: 048
  2. MEMANTINE HYDROCHLORIDE [Concomitant]
     Indication: PRODUCT USED FOR UNKNOWN INDICATION
     Route: 065

REACTIONS (2)
  - Epilepsy [Unknown]
  - Akinesia [Unknown]
